FAERS Safety Report 7505354-5 (Version None)
Quarter: 2011Q2

REPORT INFORMATION
  Report Type: 
  Country: None (occurrence: None)
  Receive Date: 20110526
  Receipt Date: 20110518
  Transmission Date: 20111010
  Serious: Yes (Other)
  Sender: FDA-Public Use
  Company Number: US-ABBOTT-11P-163-0727390-00

PATIENT
  Sex: Female

DRUGS (3)
  1. HECTOROL [Suspect]
     Indication: PRODUCT USED FOR UNKNOWN INDICATION
  2. CALCIJEX [Suspect]
     Indication: PRODUCT USED FOR UNKNOWN INDICATION
     Route: 042
  3. ZEMPLAR [Suspect]
     Indication: PRODUCT USED FOR UNKNOWN INDICATION
     Route: 042

REACTIONS (5)
  - NEOPLASM MALIGNANT [None]
  - FEELING ABNORMAL [None]
  - INSOMNIA [None]
  - BLOOD CALCIUM INCREASED [None]
  - NAUSEA [None]
